FAERS Safety Report 19287111 (Version 1)
Quarter: 2021Q2

REPORT INFORMATION
  Report Type: Spontaneous
  Country: US (occurrence: US)
  Receive Date: 20210521
  Receipt Date: 20210521
  Transmission Date: 20210717
  Serious: Yes (Hospitalization, Other)
  Sender: FDA-Public Use
  Company Number: US-INCYTE CORPORATION-2021IN004429

PATIENT

DRUGS (1)
  1. JAKAFI [Suspect]
     Active Substance: RUXOLITINIB
     Indication: MYELOID LEUKAEMIA
     Dosage: 5 MILLIGRAM, BID
     Route: 048
     Dates: start: 20210330

REACTIONS (3)
  - Off label use [Unknown]
  - Condition aggravated [Unknown]
  - Myeloid leukaemia [Unknown]

NARRATIVE: CASE EVENT DATE: 20210330
